FAERS Safety Report 9276628 (Version 2)
Quarter: 2013Q3

REPORT INFORMATION
  Report Type: Report from Study
  Country: DE (occurrence: DE)
  Receive Date: 20130507
  Receipt Date: 20130718
  Transmission Date: 20140515
  Serious: Yes (Hospitalization)
  Sender: FDA-Public Use
  Company Number: DE-BRISTOL-MYERS SQUIBB COMPANY-18845354

PATIENT
  Age: 62 Year
  Sex: Female
  Weight: 54.5 kg

DRUGS (3)
  1. CARBOPLATIN [Suspect]
     Indication: OVARIAN CANCER
     Dosage: 1DF: 5AUC?LAST DOSE:3APR13
     Route: 042
     Dates: start: 20130220
  2. PACLITAXEL [Suspect]
     Indication: OVARIAN CANCER
     Dosage: LAST DOSE:3APR2013:175MG/M2
     Route: 042
     Dates: start: 20130220
  3. BEVACIZUMAB [Suspect]
     Indication: OVARIAN CANCER
     Dosage: LAST DOSE:3APR13:15MG/KG
     Route: 042
     Dates: start: 20130220

REACTIONS (1)
  - Duodenal stenosis [Recovered/Resolved]
